FAERS Safety Report 4735906-7 (Version None)
Quarter: 2005Q3

REPORT INFORMATION
  Report Type: 
  Country: None (occurrence: None)
  Receive Date: 20050805
  Receipt Date: 20050728
  Transmission Date: 20060218
  Serious: Yes (Hospitalization)
  Sender: FDA-Public Use
  Company Number: US-AMGEN-US144490

PATIENT
  Sex: Male

DRUGS (6)
  1. NEULASTA [Suspect]
     Indication: CHEMOTHERAPY
     Dates: start: 20050727
  2. DOXORUBICIN HYDROCHLORIDE [Concomitant]
  3. BLEOMYCIN [Concomitant]
  4. VINBLASTINE [Concomitant]
  5. DACARBAZINE [Concomitant]
  6. DECADRON [Concomitant]

REACTIONS (4)
  - DYSPNOEA [None]
  - LOCAL SWELLING [None]
  - THROAT TIGHTNESS [None]
  - URTICARIA [None]
